FAERS Safety Report 25604394 (Version 1)
Quarter: 2025Q3

REPORT INFORMATION
  Report Type: Spontaneous
  Country: US (occurrence: US)
  Receive Date: 20250725
  Receipt Date: 20250725
  Transmission Date: 20251021
  Serious: No
  Sender: APTAPHARMA INC.
  Company Number: US-AptaPharma Inc.-2181187

PATIENT
  Age: 11 Year
  Sex: Female

DRUGS (1)
  1. IBUPROFEN [Suspect]
     Active Substance: IBUPROFEN
     Indication: Pyrexia

REACTIONS (3)
  - Dysgeusia [Unknown]
  - Product odour abnormal [Unknown]
  - Product taste abnormal [Unknown]
